FAERS Safety Report 4822733-5 (Version None)
Quarter: 2005Q4

REPORT INFORMATION
  Report Type: 
  Country: None (occurrence: None)
  Receive Date: 20051104
  Receipt Date: 20051027
  Transmission Date: 20060501
  Serious: Yes (Death, Disabling)
  Sender: FDA-Public Use
  Company Number: 2005JP001833

PATIENT
  Age: 18 Month
  Sex: Male
  Weight: 9.3 kg

DRUGS (5)
  1. PROGRAF [Suspect]
     Indication: BONE MARROW TRANSPLANT
     Dosage: SEE IMAGE
     Route: 048
     Dates: start: 20050218, end: 20050225
  2. PROGRAF [Suspect]
     Indication: BONE MARROW TRANSPLANT
     Dosage: SEE IMAGE
     Route: 048
     Dates: start: 20050226, end: 20050314
  3. FLUDARABINE PHOSPHATE [Concomitant]
  4. ALKERAN (MELPHALAN) INJECTION [Concomitant]
  5. PREDNISOLONE (PREDNISOLONE) INJECTION [Concomitant]

REACTIONS (11)
  - CULTURE THROAT POSITIVE [None]
  - DEPRESSED LEVEL OF CONSCIOUSNESS [None]
  - ENTEROBACTER INFECTION [None]
  - HAEMODIALYSIS [None]
  - INTRAVENTRICULAR HAEMORRHAGE [None]
  - MULTI-ORGAN FAILURE [None]
  - PSEUDOMONAS INFECTION [None]
  - RENAL FAILURE ACUTE [None]
  - SEPSIS [None]
  - SOMNOLENCE [None]
  - TRANSPLANT FAILURE [None]
